FAERS Safety Report 17928308 (Version 1)
Quarter: 2020Q2

REPORT INFORMATION
  Report Type: Spontaneous
  Country: US (occurrence: US)
  Receive Date: 20200622
  Receipt Date: 20200622
  Transmission Date: 20200714
  Serious: No
  Sender: FDA-Public Use
  Company Number: None

PATIENT

DRUGS (1)
  1. MIGHTY MICROPOINT FOR BLEMISHES,SALICYLIC ACID 0.5 ACNE TREATMENT [Suspect]
     Active Substance: SALICYLIC ACID
     Indication: ACNE
     Route: 061

REACTIONS (1)
  - Product label confusion [None]

NARRATIVE: CASE EVENT DATE: 20200622
